FAERS Safety Report 7945107-7 (Version None)
Quarter: 2011Q4

REPORT INFORMATION
  Report Type: 
  Country: None (occurrence: None)
  Receive Date: 20111129
  Receipt Date: 20111129
  Transmission Date: 20120403
  Serious: No
  Sender: FDA-Public Use
  Company Number: None

PATIENT
  Age: 58 Year
  Sex: Female
  Weight: 41.73 kg

DRUGS (1)
  1. AVELOX [Suspect]
     Indication: PNEUMONIA
     Dates: start: 20070617, end: 20070911

REACTIONS (3)
  - CONVULSION [None]
  - ABNORMAL BEHAVIOUR [None]
  - PHOTOSENSITIVITY REACTION [None]
